FAERS Safety Report 17925060 (Version 1)
Quarter: 2020Q2

REPORT INFORMATION
  Report Type: Spontaneous
  Country: US (occurrence: US)
  Receive Date: 20200622
  Receipt Date: 20200622
  Transmission Date: 20200714
  Serious: No
  Sender: FDA-Public Use
  Company Number: US-BAYER-2020-119040

PATIENT
  Age: 53 Year
  Sex: Female

DRUGS (2)
  1. SYNTHROID [Concomitant]
     Active Substance: LEVOTHYROXINE SODIUM
     Indication: MENOPAUSE
     Dosage: UNK
     Dates: start: 201905
  2. CLIMARA PRO [Suspect]
     Active Substance: ESTRADIOL\LEVONORGESTREL
     Route: 062
     Dates: start: 20200519

REACTIONS (1)
  - Product adhesion issue [None]

NARRATIVE: CASE EVENT DATE: 20200519
